FAERS Safety Report 6373961-1 (Version None)
Quarter: 2009Q3

REPORT INFORMATION
  Report Type: 
  Country: None (occurrence: None)
  Receive Date: 20090924
  Receipt Date: 20090916
  Transmission Date: 20100115
  Serious: Yes (Death, Hospitalization)
  Sender: FDA-Public Use
  Company Number: US-ROCHE-657298

PATIENT
  Sex: Male
  Weight: 69.9 kg

DRUGS (1)
  1. CAPECITABINE [Suspect]
     Indication: COLORECTAL CANCER
     Route: 048
     Dates: start: 20090728, end: 20090819

REACTIONS (2)
  - MALIGNANT NEOPLASM PROGRESSION [None]
  - VOMITING [None]
